FAERS Safety Report 8758336 (Version 1)
Quarter: 2012Q4

REPORT INFORMATION
  Report Type: 
  Country: BR (occurrence: BR)
  Receive Date: 20120829
  Receipt Date: 20120829
  Transmission Date: 20130627
  Serious: Yes (Hospitalization)
  Sender: FDA-Public Use
  Company Number: BR-AMGEN-BRASP2012054106

PATIENT
  Age: 36 Year
  Sex: Female

DRUGS (3)
  1. ENBREL [Suspect]
     Indication: RHEUMATOID ARTHRITIS
     Dosage: 50 mg, once weekly
     Route: 058
     Dates: start: 201110, end: 201206
  2. METICORTEN [Concomitant]
     Dosage: 40 mg, UNK
  3. METHOTREXATE [Concomitant]
     Dosage: 8 tablets or capsules of 2.5mg (20 mg) per week

REACTIONS (5)
  - Pulmonary fibrosis [Not Recovered/Not Resolved]
  - Back pain [Not Recovered/Not Resolved]
  - Arthralgia [Not Recovered/Not Resolved]
  - Injection site pain [Unknown]
  - Pneumonia [Not Recovered/Not Resolved]
